FAERS Safety Report 4966314-1 (Version None)
Quarter: 2006Q2

REPORT INFORMATION
  Report Type: 
  Country: None (occurrence: None)
  Receive Date: 20060407
  Receipt Date: 20060331
  Transmission Date: 20061013
  Serious: Yes (Other)
  Sender: FDA-Public Use
  Company Number: US-MERCK-0604USA00088

PATIENT
  Age: 20 Year
  Sex: Male

DRUGS (4)
  1. ELSPAR [Suspect]
     Indication: ACUTE LYMPHOCYTIC LEUKAEMIA
     Route: 051
  2. DAUNORUBICIN [Concomitant]
     Route: 065
  3. VINCRISTINE SULFATE [Concomitant]
     Route: 065
  4. PREDNISONE [Concomitant]
     Route: 065

REACTIONS (8)
  - AORTIC EMBOLUS [None]
  - DEEP VEIN THROMBOSIS [None]
  - EMBOLISM [None]
  - GENERALISED OEDEMA [None]
  - INTRACARDIAC THROMBUS [None]
  - PULMONARY EMBOLISM [None]
  - SPLENIC INFARCTION [None]
  - THROMBOSIS [None]
